FAERS Safety Report 4642082-8 (Version None)
Quarter: 2005Q2

REPORT INFORMATION
  Report Type: 
  Country: None (occurrence: None)
  Receive Date: 20050421
  Receipt Date: 20050421
  Transmission Date: 20051028
  Serious: No
  Sender: FDA-Public Use
  Company Number: None

PATIENT
  Age: 47 Year
  Sex: Female
  Weight: 68.0396 kg

DRUGS (1)
  1. BUSPAR [Suspect]
     Dosage: 30 MG QHS
     Dates: start: 20041220, end: 20050216

REACTIONS (1)
  - AMNESIA [None]
